FAERS Safety Report 5810214-1 (Version None)
Quarter: 2008Q3

REPORT INFORMATION
  Report Type: 
  Country: None (occurrence: None)
  Receive Date: 20080715
  Receipt Date: 20071114
  Transmission Date: 20090109
  Serious: No
  Sender: FDA-Public Use
  Company Number: A0694498A

PATIENT
  Age: 29 Year
  Sex: Female

DRUGS (3)
  1. IMITREX [Suspect]
     Indication: MIGRAINE
     Dosage: 100MG PER DAY
     Route: 048
     Dates: start: 20071112, end: 20071113
  2. ALEVE [Concomitant]
  3. AVIANE-21 [Concomitant]

REACTIONS (5)
  - ANXIETY [None]
  - CHEST DISCOMFORT [None]
  - FEELING JITTERY [None]
  - MYALGIA [None]
  - PALPITATIONS [None]
